FAERS Safety Report 6601410-4 (Version None)
Quarter: 2010Q1

REPORT INFORMATION
  Report Type: 
  Country: None (occurrence: None)
  Receive Date: 20100224
  Receipt Date: 20100224
  Transmission Date: 20100710
  Serious: Yes (Life-Threatening, Hospitalization)
  Sender: FDA-Public Use
  Company Number: None

PATIENT
  Age: 68 Year
  Sex: Male
  Weight: 112.3 kg

DRUGS (2)
  1. LISINOPRIL [Suspect]
     Indication: HYPERTENSION
     Dosage: LISINOPRIL 5 MG DAILY PO, HOME MED, DURATION UNKNOWN
     Route: 048
  2. VARENICLINE [Suspect]
     Indication: SMOKING CESSATION THERAPY
     Dosage: VARENICLINE DAILY PO, SEVERAL WEEKS
     Route: 048

REACTIONS (2)
  - ACUTE RESPIRATORY FAILURE [None]
  - ANGIOEDEMA [None]
